FAERS Safety Report 25709865 (Version 1)
Quarter: 2025Q3

REPORT INFORMATION
  Report Type: Spontaneous
  Country: US (occurrence: US)
  Receive Date: 20250821
  Receipt Date: 20250821
  Transmission Date: 20251020
  Serious: Yes (Other)
  Sender: PROCTER AND GAMBLE
  Company Number: US-PROCTER+GAMBLE-PH25012559

PATIENT

DRUGS (11)
  1. DIPHENHYDRAMINE HYDROCHLORIDE [Suspect]
     Active Substance: DIPHENHYDRAMINE HYDROCHLORIDE
     Dates: start: 2024
  2. ACETAMINOPHEN [Suspect]
     Active Substance: ACETAMINOPHEN
     Dates: start: 2024
  3. FENTANYL [Suspect]
     Active Substance: FENTANYL
     Dates: start: 2024
  4. MEDETOMIDINE [Suspect]
     Active Substance: MEDETOMIDINE
     Dates: start: 2024
  5. XYLAZINE [Suspect]
     Active Substance: XYLAZINE
     Dates: start: 2024
  6. OXYCODONE [Suspect]
     Active Substance: OXYCODONE
     Dates: start: 2024
  7. MIRTAZAPINE [Suspect]
     Active Substance: MIRTAZAPINE
     Dates: start: 2024
  8. QUETIAPINE [Suspect]
     Active Substance: QUETIAPINE
     Dates: start: 2024
  9. SERTRALINE [Suspect]
     Active Substance: SERTRALINE HYDROCHLORIDE
     Dates: start: 2024
  10. HYDROXYZINE [Suspect]
     Active Substance: HYDROXYZINE HYDROCHLORIDE
     Dates: start: 2024
  11. LEVETIRACETAM [Suspect]
     Active Substance: LEVETIRACETAM
     Dates: start: 2024

REACTIONS (4)
  - Toxicity to various agents [Unknown]
  - Overdose [Unknown]
  - Sinus bradycardia [Unknown]
  - Hypotension [Unknown]

NARRATIVE: CASE EVENT DATE: 20240101
